FAERS Safety Report 21085394 (Version 5)
Quarter: 2022Q4

REPORT INFORMATION
  Report Type: Report from Study
  Country: US (occurrence: US)
  Receive Date: 20220714
  Receipt Date: 20221006
  Transmission Date: 20230112
  Serious: Yes (Hospitalization, Other)
  Sender: FDA-Public Use
  Company Number: US-ABBVIE-22K-163-4467640-00

PATIENT
  Sex: Female

DRUGS (4)
  1. HUMIRA [Suspect]
     Active Substance: ADALIMUMAB
     Indication: Rheumatoid arthritis
     Dosage: CITRATE FREE
     Route: 058
     Dates: start: 20220615, end: 2022
  2. HUMIRA [Suspect]
     Active Substance: ADALIMUMAB
     Dosage: CITRATE FREE
     Route: 058
     Dates: start: 2022, end: 2022
  3. PFIZER-BIONTECH COVID-19 VACCINE [Concomitant]
     Active Substance: TOZINAMERAN
     Indication: COVID-19 immunisation
     Dosage: TIME INTERVAL: 1 TOTAL
     Route: 030
  4. MODERNA COVID-19 VACCINE [Concomitant]
     Active Substance: ELASOMERAN
     Indication: COVID-19 immunisation
     Dosage: TIME INTERVAL: 1 TOTAL: BOOSTER DOSE
     Route: 030

REACTIONS (20)
  - Pneumothorax [Not Recovered/Not Resolved]
  - Gait inability [Not Recovered/Not Resolved]
  - Nerve injury [Recovering/Resolving]
  - Pulmonary haemorrhage [Recovering/Resolving]
  - Fall [Not Recovered/Not Resolved]
  - Epistaxis [Unknown]
  - Pulmonary cavitation [Recovering/Resolving]
  - Dysgraphia [Not Recovered/Not Resolved]
  - Joint range of motion decreased [Not Recovered/Not Resolved]
  - Finger deformity [Not Recovered/Not Resolved]
  - Wrong technique in product usage process [Unknown]
  - Musculoskeletal disorder [Unknown]
  - Rib fracture [Not Recovered/Not Resolved]
  - Hypoaesthesia [Not Recovered/Not Resolved]
  - Urinary tract infection [Recovering/Resolving]
  - Pain [Recovering/Resolving]
  - Nausea [Not Recovered/Not Resolved]
  - Lung perforation [Not Recovered/Not Resolved]
  - Tracheal injury [Unknown]
  - Pain [Unknown]

NARRATIVE: CASE EVENT DATE: 20220101
